FAERS Safety Report 6057863-6 (Version None)
Quarter: 2009Q1

REPORT INFORMATION
  Report Type: 
  Country: None (occurrence: None)
  Receive Date: 20090126
  Receipt Date: 20090120
  Transmission Date: 20090719
  Serious: Yes (Death)
  Sender: FDA-Public Use
  Company Number: 040053

PATIENT
  Age: 59 Year
  Sex: Male

DRUGS (7)
  1. NALTREXONE         (NALTREXONE HYDROCHORIDE0 TABLET, 50MG [Suspect]
     Dosage: ORAL
     Route: 048
  2. ATENOLOL [Suspect]
     Dosage: ORAL
     Route: 048
  3. TRAZODONE HCI (TRAZODONE HYDROCHLORIDE) TABLET, MF [Suspect]
  4. DESIPRAMINE HCI TABLES (DESIPRAMINE HYDROCHLORIDE) TABLET [Suspect]
     Dosage: ORAL
     Route: 048
  5. SALSALATE (SALSALATE) [Suspect]
     Dosage: ORAL
     Route: 048
  6. LEVOTHYROXINE SODIUM [Suspect]
     Dosage: ORAL
     Route: 048
  7. ETHANOL (ETHANOL) [Suspect]
     Dosage: ORAL
     Route: 048

REACTIONS (1)
  - COMPLETED SUICIDE [None]
